FAERS Safety Report 6058053-3 (Version None)
Quarter: 2009Q1

REPORT INFORMATION
  Report Type: 
  Country: None (occurrence: None)
  Receive Date: 20090127
  Receipt Date: 20090113
  Transmission Date: 20090719
  Serious: Yes (Other)
  Sender: FDA-Public Use
  Company Number: 230447K09USA

PATIENT
  Age: 29 Year
  Sex: Female
  Weight: 102 kg

DRUGS (4)
  1. REBIF [Suspect]
     Indication: MULTIPLE SCLEROSIS
     Dosage: 44 MCG, 3 IN WEEKS, SUBCUTANEOUS
     Route: 058
     Dates: start: 20080324
  2. SYNTHROID [Concomitant]
  3. MULTIVITAMIN [Concomitant]
  4. VITAMIN D [Concomitant]

REACTIONS (2)
  - INJECTION SITE ERYTHEMA [None]
  - INTERVERTEBRAL DISC PROTRUSION [None]
